FAERS Safety Report 5614934-3 (Version None)
Quarter: 2008Q1

REPORT INFORMATION
  Report Type: 
  Country: None (occurrence: None)
  Receive Date: 20080204
  Receipt Date: 20080204
  Transmission Date: 20080703
  Serious: Yes (Other)
  Sender: FDA-Public Use
  Company Number: None

PATIENT
  Age: 55 Year
  Sex: Female
  Weight: 68.0396 kg

DRUGS (9)
  1. CHANTIX [Suspect]
     Dosage: 1 MG 1 BID PO
     Route: 048
     Dates: start: 20071231, end: 20080127
  2. SEROQUEL [Concomitant]
  3. EFFEXOR XR [Concomitant]
  4. ABILIFY [Concomitant]
  5. RITALIN [Concomitant]
  6. XANAX [Concomitant]
  7. REMICAID INFUSIONS [Concomitant]
  8. CELEBREX [Concomitant]
  9. PERCOCET [Concomitant]

REACTIONS (5)
  - AGITATION [None]
  - ANGER [None]
  - ILL-DEFINED DISORDER [None]
  - MANIA [None]
  - TEARFULNESS [None]
